FAERS Safety Report 4439563-9 (Version None)
Quarter: 2004Q3

REPORT INFORMATION
  Report Type: 
  Country: None (occurrence: None)
  Receive Date: 20040902
  Receipt Date: 20040825
  Transmission Date: 20050211
  Serious: Yes (Other)
  Sender: FDA-Public Use
  Company Number: US-JNJFOC-20040809000

PATIENT
  Sex: Female
  Weight: 82.1 kg

DRUGS (9)
  1. REMICADE [Suspect]
     Indication: RHEUMATOID ARTHRITIS
     Route: 042
  2. ZANTAC [Concomitant]
  3. REGLAN [Concomitant]
  4. VICODIN [Concomitant]
  5. VICODIN [Concomitant]
  6. ASPIRIN [Concomitant]
  7. METHOTREXATE [Concomitant]
     Dosage: EVERY SATURDAY.
  8. PREDNISONE [Concomitant]
  9. SULFASALAZINE [Concomitant]

REACTIONS (4)
  - CONFUSIONAL STATE [None]
  - POST PROCEDURAL HAEMORRHAGE [None]
  - RECTAL HAEMORRHAGE [None]
  - WEIGHT DECREASED [None]
